FAERS Safety Report 6556610-9 (Version None)
Quarter: 2010Q1

REPORT INFORMATION
  Report Type: 
  Country: None (occurrence: None)
  Receive Date: 20100128
  Receipt Date: 20100120
  Transmission Date: 20100710
  Serious: Yes (Other)
  Sender: FDA-Public Use
  Company Number: CA-JNJFOC-20090703727

PATIENT
  Sex: Female
  Weight: 45 kg

DRUGS (12)
  1. REMICADE [Suspect]
     Indication: RHEUMATOID ARTHRITIS
     Dosage: 53 INFUSIONS ON UNSPECIFIED DATES
     Route: 042
  2. REMICADE [Suspect]
     Dosage: 55TH DOSE
     Route: 042
  3. REMICADE [Suspect]
     Dosage: EVERY 7-8 WEEKS
     Route: 042
  4. ARAVA [Concomitant]
     Dosage: ^1 TB EVERYOTHER DAY^
  5. LOSEC [Concomitant]
     Dosage: ^1 TB DIE^
  6. ACTONEL [Concomitant]
  7. RIVASA [Concomitant]
     Dosage: ^1 TB DIE^
  8. PREDNISONE [Concomitant]
  9. CELEBREX [Concomitant]
     Dosage: ^1 TB^
  10. FLURAZEPAM [Concomitant]
     Dosage: ^HS^
  11. DILAUDID [Concomitant]
     Dosage: ^1 TB^ EVERY 4 HOURS AS NEEDED
  12. DEMEROL [Concomitant]
     Dosage: ^1 TB^ EVERY 4 HOURS AS NEEDED

REACTIONS (1)
  - NON-HODGKIN'S LYMPHOMA [None]
